FAERS Safety Report 8914381 (Version 2)
Quarter: 2013Q2

REPORT INFORMATION
  Report Type: Spontaneous
  Country: US (occurrence: US)
  Receive Date: 20121118
  Receipt Date: 20130510
  Transmission Date: 20140414
  Serious: No
  Sender: FDA-Public Use
  Company Number: US-009507513-1211USA005572

PATIENT
  Age: 62 Year
  Sex: Female

DRUGS (4)
  1. JANUMET [Suspect]
     Indication: DIABETES MELLITUS
     Dosage: 50/1000, TWICE A DAY
     Route: 048
     Dates: start: 201210
  2. COZAAR [Concomitant]
  3. DIURETIC (UNSPECIFIED) [Concomitant]
  4. STATIN (UNSPECIFIED) [Concomitant]

REACTIONS (1)
  - Insomnia [Not Recovered/Not Resolved]
